FAERS Safety Report 18979016 (Version 1)
Quarter: 2021Q1

REPORT INFORMATION
  Report Type: Other
  Country: RO (occurrence: RO)
  Receive Date: 20210308
  Receipt Date: 20210308
  Transmission Date: 20210420
  Serious: Yes (Other)
  Sender: FDA-Public Use
  Company Number: RO-ROCHE-2776240

PATIENT
  Sex: Female
  Weight: 117 kg

DRUGS (2)
  1. URSOFALK [Concomitant]
     Active Substance: URSODIOL
  2. ALECENSA [Suspect]
     Active Substance: ALECTINIB HYDROCHLORIDE
     Indication: METASTASIS
     Dosage: 4 IN THE MORNING, AND 4 IN THE EVENING
     Route: 065
     Dates: start: 20201224

REACTIONS (4)
  - Leukopenia [Unknown]
  - Thrombocytopenia [Unknown]
  - Weight increased [Unknown]
  - Constipation [Unknown]
